FAERS Safety Report 8901379 (Version 1)
Quarter: 2012Q4

REPORT INFORMATION
  Report Type: Report from Study
  Country: CA (occurrence: CA)
  Receive Date: 20121109
  Receipt Date: 20121109
  Transmission Date: 20130627
  Serious: Yes (Other)
  Sender: FDA-Public Use
  Company Number: CA-JNJFOC-20121101020

PATIENT
  Age: 48 Year
  Sex: Male
  Weight: 96.3 kg

DRUGS (3)
  1. REMICADE [Suspect]
     Indication: CROHN^S DISEASE
     Route: 042
     Dates: start: 20120725
  2. REMICADE [Suspect]
     Indication: CROHN^S DISEASE
     Dosage: last infusion
     Route: 042
     Dates: start: 20120907
  3. CODEINE [Concomitant]
     Route: 065

REACTIONS (3)
  - Haemoglobin decreased [Unknown]
  - Pharyngeal oedema [Recovering/Resolving]
  - Dysphagia [Recovering/Resolving]
